FAERS Safety Report 23541864 (Version 2)
Quarter: 2024Q1

REPORT INFORMATION
  Report Type: Other
  Country: US (occurrence: None)
  Receive Date: 20240220
  Receipt Date: 20240227
  Transmission Date: 20240410
  Serious: Yes (Death)
  Sender: FDA-Public Use
  Company Number: US-ROCHE-3511198

PATIENT
  Age: 89 Year
  Sex: Male

DRUGS (2)
  1. RITUXAN [Suspect]
     Active Substance: RITUXIMAB
     Indication: Diffuse large B-cell lymphoma
     Dosage: INFUSE 600 MG INTRAVENOUSLY EVERY MONTH
     Route: 041
  2. RITUXAN [Suspect]
     Active Substance: RITUXIMAB
     Dosage: INFUSE 600MG INTRAVENOUSLY EVERY MONTH
     Route: 041

REACTIONS (2)
  - Death [Fatal]
  - Off label use [Unknown]
